FAERS Safety Report 14753101 (Version 2)
Quarter: 2018Q4

REPORT INFORMATION
  Report Type: Spontaneous
  Country: US (occurrence: US)
  Receive Date: 20180412
  Receipt Date: 20181012
  Transmission Date: 20190204
  Serious: Yes (Hospitalization, Other)
  Sender: FDA-Public Use
  Company Number: US-009507513-1804USA005528

PATIENT
  Sex: Female
  Weight: 89.34 kg

DRUGS (1)
  1. NUVARING [Suspect]
     Active Substance: ETHINYL ESTRADIOL\ETONOGESTREL
     Indication: CONTRACEPTION
     Dosage: 1 DF, UNK
     Route: 067
     Dates: start: 201703, end: 201705

REACTIONS (14)
  - Leukocytosis [Unknown]
  - Presyncope [Unknown]
  - Chest pain [Recovered/Resolved]
  - Nausea [Unknown]
  - Pulmonary embolism [Unknown]
  - Paraesthesia oral [Unknown]
  - Paraesthesia [Unknown]
  - Cough [Unknown]
  - Hyperlipidaemia [Unknown]
  - Sinus tachycardia [Unknown]
  - Hypertension [Unknown]
  - Myocardial ischaemia [Unknown]
  - Bronchitis [Unknown]
  - Swelling [Unknown]

NARRATIVE: CASE EVENT DATE: 2017
